FAERS Safety Report 22350462 (Version 1)
Quarter: 2023Q2

REPORT INFORMATION
  Report Type: Spontaneous
  Country: US (occurrence: None)
  Receive Date: 20230520
  Receipt Date: 20230520
  Transmission Date: 20230722
  Serious: Yes (Disabling)
  Sender: FDA-Public Use
  Company Number: None

PATIENT
  Age: 80 Year
  Sex: Female
  Weight: 56.25 kg

DRUGS (1)
  1. RIFAMPIN [Suspect]
     Active Substance: RIFAMPIN
     Indication: Pneumonia
     Dosage: OTHER QUANTITY : 2 CAPSULE(S);?OTHER FREQUENCY : MON/WED/FRI;?
     Route: 048
     Dates: start: 20220711, end: 20220811

REACTIONS (6)
  - Asthenia [None]
  - Decreased appetite [None]
  - Nausea [None]
  - Confusional state [None]
  - Pruritus [None]
  - Rash [None]

NARRATIVE: CASE EVENT DATE: 20220711
